FAERS Safety Report 10073536 (Version 1)
Quarter: 2014Q2

REPORT INFORMATION
  Report Type: Spontaneous
  Country: US (occurrence: US)
  Receive Date: 20140411
  Receipt Date: 20140411
  Transmission Date: 20141212
  Serious: No
  Sender: FDA-Public Use
  Company Number: US-TEVA-472616USA

PATIENT
  Sex: Female

DRUGS (1)
  1. PROAIR HFA [Suspect]
     Dates: start: 20140117, end: 20140126

REACTIONS (3)
  - Feeling jittery [Not Recovered/Not Resolved]
  - Insomnia [Unknown]
  - Device malfunction [Unknown]
